FAERS Safety Report 7101857-6 (Version None)
Quarter: 2010Q4

REPORT INFORMATION
  Report Type: 
  Country: None (occurrence: None)
  Receive Date: 20101108
  Receipt Date: 20101025
  Transmission Date: 20110411
  Serious: Yes (Other)
  Sender: FDA-Public Use
  Company Number: FR-2010-2229

PATIENT
  Sex: Male

DRUGS (9)
  1. NAVELBINE [Suspect]
     Indication: HODGKIN'S DISEASE
     Dosage: 24 MG IV
     Route: 042
     Dates: start: 20100419, end: 20100517
  2. KIOVIG [Suspect]
     Indication: PROPHYLAXIS
     Dosage: 20 G IV
     Route: 042
     Dates: start: 20091028, end: 20100517
  3. GEMCITABINE [Suspect]
     Indication: HODGKIN'S DISEASE
     Dosage: 1292 MG IV
     Route: 042
     Dates: start: 20100419, end: 20100517
  4. SOLUPRED [Suspect]
     Indication: CHEMOTHERAPY
     Dates: start: 20100419, end: 20100528
  5. ORACILLINE [Concomitant]
  6. BACTRIM [Concomitant]
  7. VFEND. MFR: NOT SPECIFIED [Concomitant]
  8. EMEND [Concomitant]
  9. ZOPHREN [Concomitant]

REACTIONS (3)
  - DEEP VEIN THROMBOSIS [None]
  - HODGKIN'S DISEASE RECURRENT [None]
  - RENAL VEIN THROMBOSIS [None]
